FAERS Safety Report 7225944-7 (Version None)
Quarter: 2011Q1

REPORT INFORMATION
  Report Type: 
  Country: None (occurrence: None)
  Receive Date: 20110113
  Receipt Date: 20110105
  Transmission Date: 20110831
  Serious: Yes (Hospitalization, Disabling)
  Sender: FDA-Public Use
  Company Number: JP-GILEAD-2007-0013950

PATIENT
  Sex: Male

DRUGS (9)
  1. KALETRA [Suspect]
     Route: 048
     Dates: start: 20021124, end: 20061023
  2. LAC B [Concomitant]
     Route: 065
     Dates: start: 20030401, end: 20070319
  3. PRIMIDONE [Concomitant]
     Route: 065
     Dates: start: 20030401, end: 20060613
  4. ANAFRANIL [Concomitant]
     Route: 065
     Dates: start: 20030401, end: 20061031
  5. RIVOTRIL [Concomitant]
     Route: 065
     Dates: start: 20030401
  6. PRIMIDONE [Concomitant]
     Route: 065
     Dates: start: 20060614
  7. VIREAD [Suspect]
     Indication: HIV INFECTION
     Route: 048
     Dates: start: 20021125
  8. KALETRA [Suspect]
     Indication: HIV INFECTION
     Route: 048
     Dates: start: 20061024
  9. BUFFERIN [Concomitant]
     Route: 065
     Dates: start: 20030401

REACTIONS (2)
  - EPILEPSY [None]
  - OSTEONECROSIS [None]
